FAERS Safety Report 8107645-6 (Version None)
Quarter: 2012Q1

REPORT INFORMATION
  Report Type: 
  Country: None (occurrence: None)
  Receive Date: 20120202
  Receipt Date: 20120127
  Transmission Date: 20120608
  Serious: Yes (Other)
  Sender: FDA-Public Use
  Company Number: US-BAYER-2010-003153

PATIENT
  Age: 33 Year
  Sex: Female
  Weight: 124.72 kg

DRUGS (5)
  1. FUROSEMIDE [Concomitant]
     Dosage: UNK
     Dates: start: 20100301
  2. YASMIN [Suspect]
     Dosage: UNK
     Dates: start: 20041101, end: 20090901
  3. DROSPIRENONE AND ETHINYL ESTRADIOL [Suspect]
     Dosage: UNK
     Dates: start: 20041101, end: 20090901
  4. CENTRUM PERFORMANCE [Concomitant]
  5. POTASSIUM CHLORIDE [Concomitant]

REACTIONS (2)
  - GALLBLADDER INJURY [None]
  - CHOLECYSTITIS CHRONIC [None]
